FAERS Safety Report 4497447-4 (Version None)
Quarter: 2004Q4

REPORT INFORMATION
  Report Type: 
  Country: None (occurrence: None)
  Receive Date: 20041110
  Receipt Date: 20040914
  Transmission Date: 20050328
  Serious: Yes (Hospitalization)
  Sender: FDA-Public Use
  Company Number: US-MERCK-0409USA01298

PATIENT
  Sex: Female

DRUGS (2)
  1. SINGULAIR [Suspect]
     Indication: ASTHMA
     Route: 048
  2. CORTICOSTEROIDS (UNSPECIFIED) [Concomitant]
     Route: 065

REACTIONS (1)
  - ALLERGIC GRANULOMATOUS ANGIITIS [None]
